FAERS Safety Report 18226966 (Version 1)
Quarter: 2020Q3

REPORT INFORMATION
  Report Type: Report from Study
  Country: CO (occurrence: CO)
  Receive Date: 20200903
  Receipt Date: 20200903
  Transmission Date: 20201103
  Serious: Yes (Other)
  Sender: FDA-Public Use
  Company Number: CO-BAYER-2020-152146

PATIENT
  Age: 51 Year
  Sex: Female

DRUGS (3)
  1. BETAFERON [Suspect]
     Active Substance: INTERFERON BETA-1B
     Indication: MULTIPLE SCLEROSIS
  2. BETAFERON [Suspect]
     Active Substance: INTERFERON BETA-1B
     Indication: MULTIPLE SCLEROSIS
     Dosage: UNK UNK, QOD
     Dates: start: 20200714
  3. DOLEX FORTE [Concomitant]
     Active Substance: ACETAMINOPHEN\CAFFEINE

REACTIONS (8)
  - Tachycardia [Recovered/Resolved]
  - Hepatic steatosis [None]
  - Chest pain [Recovered/Resolved]
  - White blood cell count decreased [None]
  - Dyspnoea [Recovered/Resolved]
  - Multiple sclerosis relapse [None]
  - Hepatic lesion [None]
  - Arthralgia [Not Recovered/Not Resolved]

NARRATIVE: CASE EVENT DATE: 20200724
